FAERS Safety Report 24731969 (Version 1)
Quarter: 2024Q4

REPORT INFORMATION
  Report Type: Spontaneous
  Country: US (occurrence: None)
  Receive Date: 20241213
  Receipt Date: 20241213
  Transmission Date: 20250115
  Serious: Yes (Other)
  Sender: Public
  Company Number: None

PATIENT
  Age: 64 Year
  Sex: Male
  Weight: 123.75 kg

DRUGS (13)
  1. ENBREL [Suspect]
     Active Substance: ETANERCEPT
     Indication: Ankylosing spondylitis
     Dosage: OTHER QUANTITY : 1 INJECTION(S);?OTHER FREQUENCY : WEEKLY;?OTHER ROUTE : SKIN INJECTION;?
     Route: 050
     Dates: start: 20190301, end: 20240301
  2. ALLOPURINOL [Concomitant]
     Active Substance: ALLOPURINOL
  3. LISINOPRIL [Concomitant]
     Active Substance: LISINOPRIL
  4. METOPROLOL [Concomitant]
     Active Substance: METOPROLOL
  5. BACLOFEN [Concomitant]
     Active Substance: BACLOFEN
  6. VENTOLIN [Concomitant]
     Active Substance: ALBUTEROL SULFATE
  7. GABAPENTIN [Concomitant]
     Active Substance: GABAPENTIN
  8. MONTELUKAST [Concomitant]
     Active Substance: MONTELUKAST SODIUM
  9. ASPIRIN [Concomitant]
     Active Substance: ASPIRIN
  10. ACETAMINOPHEN [Concomitant]
     Active Substance: ACETAMINOPHEN
  11. MIRALAX [Concomitant]
     Active Substance: POLYETHYLENE GLYCOL 3350
  12. VITAMINS [Concomitant]
     Active Substance: VITAMINS
  13. VITAMIN C [Concomitant]
     Active Substance: ASCORBIC ACID

REACTIONS (7)
  - Abdominal pain upper [None]
  - Asthenia [None]
  - Pruritus [None]
  - Liver disorder [None]
  - Gallbladder disorder [None]
  - Metabolic dysfunction-associated steatohepatitis [None]
  - Autoimmune hepatitis [None]

NARRATIVE: CASE EVENT DATE: 20240301
